FAERS Safety Report 11403350 (Version 1)
Quarter: 2015Q3

REPORT INFORMATION
  Report Type: Spontaneous
  Country: US (occurrence: US)
  Receive Date: 20150821
  Receipt Date: 20150821
  Transmission Date: 20151125
  Serious: No
  Sender: FDA-Public Use
  Company Number: US-TEVA-549077USA

PATIENT
  Sex: Female

DRUGS (1)
  1. CLONIDINE. [Suspect]
     Active Substance: CLONIDINE
     Indication: HYPERTENSION
     Dosage: .1 MILLIGRAM DAILY;
     Dates: start: 2014

REACTIONS (3)
  - Blood pressure inadequately controlled [Unknown]
  - Drug ineffective [Unknown]
  - Hypertension [Unknown]
